FAERS Safety Report 12840011 (Version 2)
Quarter: 2016Q4

REPORT INFORMATION
  Report Type: Spontaneous
  Country: FR (occurrence: FR)
  Receive Date: 20161012
  Receipt Date: 20161205
  Transmission Date: 20170207
  Serious: Yes (Hospitalization)
  Sender: FDA-Public Use
  Company Number: FR-PFIZER INC-2016468577

PATIENT
  Age: 52 Year
  Sex: Female

DRUGS (15)
  1. CISPLATIN ACCORD [Suspect]
     Active Substance: CISPLATIN
     Dosage: 133 MG, ONCE CYCLIC
     Route: 042
     Dates: start: 20160929, end: 20161104
  2. METHYLPREDNISOLONE MYLAN /00049604/ [Concomitant]
     Indication: PREMEDICATION
     Dosage: 40 MG, ONCE CYCLIC
     Route: 042
     Dates: start: 20160831, end: 20160831
  3. DOLIPRANE [Concomitant]
     Active Substance: ACETAMINOPHEN
     Dosage: UNK
  4. PRAZEPAM [Concomitant]
     Active Substance: PRAZEPAM
     Dosage: UNK
  5. LYRICA [Suspect]
     Active Substance: PREGABALIN
     Indication: NEURALGIA
     Dosage: 50 MG, 1X/DAY
     Route: 048
     Dates: start: 20160831, end: 20160902
  6. LYRICA [Suspect]
     Active Substance: PREGABALIN
     Dosage: 50 MG, 2X/DAY
     Route: 048
     Dates: start: 20160903, end: 20160907
  7. LYRICA [Suspect]
     Active Substance: PREGABALIN
     Indication: NEURALGIA
     Dosage: 25 MG, 2X/DAY
     Route: 048
     Dates: start: 20160922
  8. LYRICA [Suspect]
     Active Substance: PREGABALIN
     Dosage: 50 MG, 2X/DAY
     Route: 048
     Dates: start: 20161003, end: 20161104
  9. SKENAN [Suspect]
     Active Substance: MORPHINE SULFATE
     Indication: CANCER PAIN
     Dosage: 80 MG, 2X/DAY
     Route: 048
     Dates: start: 20160628, end: 20160907
  10. SKENAN [Suspect]
     Active Substance: MORPHINE SULFATE
     Dosage: 60 MG, 2X/DAY
     Route: 048
     Dates: end: 20161104
  11. CISPLATIN ACCORD [Suspect]
     Active Substance: CISPLATIN
     Indication: TONSIL CANCER
     Dosage: 133 MG, ONCE CYCLIC
     Route: 042
     Dates: start: 20160831, end: 20160831
  12. PLAQUENIL [Concomitant]
     Active Substance: HYDROXYCHLOROQUINE SULFATE
     Dosage: UNK
  13. ONDANSETRON ACCORD [Concomitant]
     Active Substance: ONDANSETRON
     Indication: PREMEDICATION
     Dosage: 8 MG, ONCE CYCLIC
     Route: 042
     Dates: start: 20160831, end: 20160831
  14. PECFENT [Concomitant]
     Active Substance: FENTANYL CITRATE
     Dosage: UNK
  15. ULTRA LEVURA /00838001/ [Concomitant]
     Dosage: UNK

REACTIONS (3)
  - Hepatitis [Recovered/Resolved]
  - Chest X-ray abnormal [Unknown]
  - Productive cough [Unknown]

NARRATIVE: CASE EVENT DATE: 20160906
